FAERS Safety Report 4413017-8 (Version None)
Quarter: 2004Q3

REPORT INFORMATION
  Report Type: 
  Country: None (occurrence: None)
  Receive Date: 20040730
  Receipt Date: 20040730
  Transmission Date: 20050211
  Serious: Yes (Hospitalization)
  Sender: FDA-Public Use
  Company Number: None

PATIENT
  Age: 57 Year
  Sex: Male

DRUGS (13)
  1. DIPHENHYDRAMINE 50 MG Q HS RENEWED 5/04 [Suspect]
     Dates: start: 20040501
  2. GABAPENTIN [Suspect]
     Dosage: 800 MG TID
  3. SERTRALINE 200 MG DAILY RENEWED 5/04 [Suspect]
  4. TRAZODONE 100 MG Q HS RENEWED 5/04 [Suspect]
     Dosage: 1 TABLET QHS
     Dates: start: 20040501
  5. LISINOPRIL [Suspect]
     Dosage: 1 DAILY
     Dates: start: 20040501
  6. DILTIAZEM [Suspect]
     Dosage: 1 DAILY
     Dates: end: 20040621
  7. SIMVASTATIN [Concomitant]
  8. ACCU-CHEK COMFORT CV (GLUCOSE) TEST STRIP [Concomitant]
  9. OMEPRAZOLE SA [Concomitant]
  10. INSULIN , ASPART, HUM [Concomitant]
  11. SYNTHROID [Concomitant]
  12. ALCOHOL PREP PAD [Concomitant]
  13. LANCET, TECHLITE [Concomitant]

REACTIONS (1)
  - DIZZINESS [None]
